FAERS Safety Report 24194849 (Version 2)
Quarter: 2024Q3

REPORT INFORMATION
  Report Type: Report from Study
  Country: US (occurrence: US)
  Receive Date: 20240809
  Receipt Date: 20240906
  Transmission Date: 20241017
  Serious: Yes (Other)
  Sender: ALNYLAM PHARMACEUTICALS
  Company Number: US-ALNYLAM PHARMACEUTICALS, INC.-ALN-2024-004392

PATIENT

DRUGS (2)
  1. GIVLAARI [Suspect]
     Active Substance: GIVOSIRAN SODIUM
     Indication: Product used for unknown indication
     Dosage: 202 MILLIGRAM, ONCE EVERY 28 DAYS
     Route: 058
     Dates: start: 20221110, end: 20221110
  2. GIVLAARI [Suspect]
     Active Substance: GIVOSIRAN SODIUM
     Dosage: UNK
     Route: 058

REACTIONS (4)
  - Porphyria acute [Unknown]
  - Weight increased [Unknown]
  - Peripheral swelling [Unknown]
  - Abdominal pain [Unknown]
